FAERS Safety Report 24825789 (Version 1)
Quarter: 2025Q1

REPORT INFORMATION
  Report Type: Spontaneous
  Country: TR (occurrence: TR)
  Receive Date: 20250109
  Receipt Date: 20250109
  Transmission Date: 20250409
  Serious: Yes (Life-Threatening, Other)
  Sender: PFIZER
  Company Number: TR-PFIZER INC-PV202400170892

PATIENT
  Age: 57 Year
  Sex: Female

DRUGS (7)
  1. BOSUTINIB [Suspect]
     Active Substance: BOSUTINIB
     Indication: Chronic myeloid leukaemia
     Dosage: 500 MG, DAILY
     Dates: start: 202405
  2. BOSUTINIB [Suspect]
     Active Substance: BOSUTINIB
     Dosage: 300 MG, DAILY
     Dates: start: 2024
  3. BOSUTINIB [Suspect]
     Active Substance: BOSUTINIB
     Dosage: 100 MG, DAILY, REDUCED
     Dates: start: 2024
  4. IMATINIB MESYLATE [Suspect]
     Active Substance: IMATINIB MESYLATE
     Indication: Chronic myeloid leukaemia
     Dosage: 400 MG, DAILY
     Dates: start: 20221215
  5. DASATINIB [Suspect]
     Active Substance: DASATINIB
     Indication: Chronic myeloid leukaemia
     Dosage: 50 MG, DAILY
     Dates: start: 20240201
  6. DASATINIB [Suspect]
     Active Substance: DASATINIB
     Dosage: 100 MG, DAILY, INCREASED
     Dates: start: 202402
  7. DASATINIB [Suspect]
     Active Substance: DASATINIB
     Dates: start: 202402, end: 202403

REACTIONS (2)
  - Aplastic anaemia [Unknown]
  - Pancytopenia [Unknown]

NARRATIVE: CASE EVENT DATE: 20231001
